FAERS Safety Report 7232636-7 (Version None)
Quarter: 2010Q4

REPORT INFORMATION
  Report Type: 
  Country: None (occurrence: None)
  Receive Date: 20101221
  Receipt Date: 20101221
  Transmission Date: 20110411
  Serious: Yes (Other)
  Sender: FDA-Public Use
  Company Number: None

PATIENT
  Sex: Female
  Weight: 58.9676 kg

DRUGS (1)
  1. LISINOPRIL [Suspect]
     Indication: BLOOD PRESSURE
     Dosage: 20 MG 1 DAY ORAL
     Route: 048
     Dates: start: 20100501, end: 20100801

REACTIONS (8)
  - ALOPECIA [None]
  - BACTERIAL INFECTION [None]
  - HAEMATOMA [None]
  - HAIR GROWTH ABNORMAL [None]
  - HERNIA REPAIR [None]
  - IMPAIRED WORK ABILITY [None]
  - OEDEMA PERIPHERAL [None]
  - POST PROCEDURAL COMPLICATION [None]
